FAERS Safety Report 9252341 (Version 1)
Quarter: 2013Q1

REPORT INFORMATION
  Report Type: Spontaneous
  Country: US (occurrence: None)
  Receive Date: 20130305
  Receipt Date: 20130305
  Transmission Date: 20140127
  Serious: Yes (Other)
  Sender: FDA-Public Use
  Company Number: 163-21880-12083002

PATIENT
  Age: 59 Year
  Sex: Female

DRUGS (2)
  1. REVLIMID (LENALIDOMIDE) (CAPSULES) [Suspect]
     Indication: PLASMA CELL MYELOMA
     Dosage: 03/16/2011 - ONGOING, CAPSULE, 15 MG, 21 IN 21 D, PO
  2. AMOXICILLIN (AMOXICILLIN) [Concomitant]

REACTIONS (1)
  - Localised infection [None]
